FAERS Safety Report 7943373-5 (Version None)
Quarter: 2011Q4

REPORT INFORMATION
  Report Type: 
  Country: None (occurrence: None)
  Receive Date: 20111128
  Receipt Date: 20111117
  Transmission Date: 20120403
  Serious: Yes (Other)
  Sender: FDA-Public Use
  Company Number: US-BAYER-2011-041369

PATIENT
  Sex: Female
  Weight: 51.247 kg

DRUGS (2)
  1. YASMIN [Suspect]
     Indication: PREMENSTRUAL SYNDROME
  2. YASMIN [Suspect]
     Indication: CONTRACEPTION
     Dosage: UNK
     Dates: start: 20081201, end: 20091201

REACTIONS (5)
  - EMOTIONAL DISTRESS [None]
  - PAIN [None]
  - INJURY [None]
  - GALLBLADDER INJURY [None]
  - ANXIETY [None]
